FAERS Safety Report 20788904 (Version 1)
Quarter: 2022Q2

REPORT INFORMATION
  Report Type: Spontaneous
  Country: US (occurrence: US)
  Receive Date: 20220505
  Receipt Date: 20220505
  Transmission Date: 20220721
  Serious: No
  Sender: FDA-Public Use
  Company Number: US-009507513-2205USA000580

PATIENT
  Age: 74 Year
  Sex: Female

DRUGS (2)
  1. KEYTRUDA [Suspect]
     Active Substance: PEMBROLIZUMAB
     Indication: Endometrial cancer
     Dosage: INFUSIONS
     Dates: start: 20220414
  2. LENVATINIB MESYLATE [Suspect]
     Active Substance: LENVATINIB MESYLATE
     Indication: Endometrial cancer
     Dosage: 20 MILLIGRAM, DAILY (QD)
     Route: 048
     Dates: start: 20220414, end: 20220418

REACTIONS (5)
  - Blood pressure increased [Recovered/Resolved]
  - Headache [Unknown]
  - Arthralgia [Unknown]
  - Rash [Unknown]
  - Pyrexia [Unknown]

NARRATIVE: CASE EVENT DATE: 20220414
